FAERS Safety Report 7812257-5 (Version None)
Quarter: 2011Q4

REPORT INFORMATION
  Report Type: 
  Country: None (occurrence: None)
  Receive Date: 20111013
  Receipt Date: 20110812
  Transmission Date: 20120403
  Serious: No
  Sender: FDA-Public Use
  Company Number: US-NOVEN-11US002997

PATIENT
  Sex: Male

DRUGS (3)
  1. FENTANYL [Suspect]
     Indication: PAIN
     Dosage: 75 UG/HR, Q48H
     Route: 062
     Dates: start: 20110101, end: 20110701
  2. CARDURA [Concomitant]
     Indication: PROSTATIC DISORDER
     Route: 048
  3. OXYCONTIN [Concomitant]
     Indication: PAIN
     Route: 048

REACTIONS (2)
  - PRODUCT QUALITY ISSUE [None]
  - APPLICATION SITE RASH [None]
